FAERS Safety Report 9610985 (Version 1)
Quarter: 2013Q4

REPORT INFORMATION
  Report Type: Spontaneous
  Country: MX (occurrence: MX)
  Receive Date: 20131009
  Receipt Date: 20131009
  Transmission Date: 20140711
  Serious: Yes (Hospitalization)
  Sender: FDA-Public Use
  Company Number: MX-VIIV HEALTHCARE LIMITED-A1041051A

PATIENT
  Age: 32 Year
  Sex: Male
  Weight: 73.5 kg

DRUGS (5)
  1. ABACAVIR [Suspect]
     Indication: ANTIRETROVIRAL THERAPY
     Route: 048
     Dates: start: 20130708, end: 20130814
  2. LAMIVUDINE-HIV [Suspect]
     Indication: ANTIRETROVIRAL THERAPY
     Dates: start: 20130708, end: 20130814
  3. NEVIRAPINE [Suspect]
     Indication: ANTIRETROVIRAL THERAPY
     Dates: start: 20130708
  4. NAPROXEN [Suspect]
     Indication: PRODUCT USED FOR UNKNOWN INDICATION
     Dates: start: 201307
  5. ATAZANAVIR [Concomitant]
     Dates: start: 201204

REACTIONS (8)
  - Toxic epidermal necrolysis [Unknown]
  - Drug hypersensitivity [Unknown]
  - Rash [Unknown]
  - Pyrexia [Unknown]
  - Erythema [Unknown]
  - Conjunctival hyperaemia [Unknown]
  - Aphthous stomatitis [Unknown]
  - Dermatitis [Unknown]
